FAERS Safety Report 22120734 (Version 1)
Quarter: 2023Q1

REPORT INFORMATION
  Report Type: Spontaneous
  Country: US (occurrence: None)
  Receive Date: 20230320
  Receipt Date: 20230320
  Transmission Date: 20230418
  Serious: No
  Sender: FDA-Public Use
  Company Number: None

PATIENT
  Age: 53 Year
  Sex: Female
  Weight: 72.57 kg

DRUGS (2)
  1. TALTZ [Suspect]
     Active Substance: IXEKIZUMAB
     Indication: Psoriasis
     Dosage: INJECT 160MG (2 SYRINGES) SUBCUTANEOUSLY AT WEEK 0 THEN 80MG (1 SYRINGE)  SUBCUTANEOUSLY AT WEEK 2
     Route: 058
     Dates: start: 202302
  2. TALTZ [Suspect]
     Active Substance: IXEKIZUMAB
     Indication: Dermatitis atopic

REACTIONS (1)
  - Cellulitis [None]
